FAERS Safety Report 24159383 (Version 1)
Quarter: 2024Q3

REPORT INFORMATION
  Report Type: Report from Study
  Country: US (occurrence: None)
  Receive Date: 20240731
  Receipt Date: 20240731
  Transmission Date: 20241017
  Serious: Yes (Other)
  Sender: ASTRAZENECA
  Company Number: 2021A000127

PATIENT
  Sex: Female

DRUGS (2)
  1. CALQUENCE [Suspect]
     Active Substance: ACALABRUTINIB
     Indication: Chronic lymphocytic leukaemia
     Route: 048
  2. CALQUENCE [Suspect]
     Active Substance: ACALABRUTINIB
     Indication: White blood cell count increased
     Route: 048

REACTIONS (6)
  - Ulcer [Unknown]
  - White blood cell count decreased [Not Recovered/Not Resolved]
  - Abdominal discomfort [Unknown]
  - White blood cell count abnormal [Unknown]
  - Dysstasia [Unknown]
  - Asthenia [Unknown]
